FAERS Safety Report 8173056-0 (Version None)
Quarter: 2012Q1

REPORT INFORMATION
  Report Type: 
  Country: None (occurrence: None)
  Receive Date: 20120104
  Receipt Date: 20110919
  Transmission Date: 20120608
  Serious: No
  Sender: FDA-Public Use
  Company Number: 2011HGS-002556

PATIENT
  Age: 82 Year
  Sex: Male
  Weight: 83.9154 kg

DRUGS (8)
  1. LOTREL (LOTREL) (AMLODIPINE, BENAZEPRIL HYDROCHLORIDE) [Concomitant]
  2. PRILOSEC (OMEPRAZOLE) (OMEPRAZOLE) [Concomitant]
  3. LORTAB (VICODIN) (PARACETAMOL, HYDROCODONE BITARTRATE) [Concomitant]
  4. BENLYSTA [Suspect]
     Indication: SYSTEMIC LUPUS ERYTHEMATOSUS
     Dosage: 10 MG/KG, 1 IN 2 WK, INTRAVENOUS DRIP
     Route: 041
     Dates: start: 20110714
  5. ASPIRIN [Concomitant]
  6. AMBIEN [Concomitant]
  7. MAG-OXIDE (MAGNESIUM OXIDE) (MAGNESIUM OXIDE) [Concomitant]
  8. BUSPRIONE (BUSPIRONE HYDROCHLORIDE) (BUSPIRONE HYDROCHLORIDE) [Concomitant]

REACTIONS (3)
  - PAIN IN EXTREMITY [None]
  - FEELING ABNORMAL [None]
  - JOINT SWELLING [None]
